FAERS Safety Report 5498636-2 (Version None)
Quarter: 2007Q4

REPORT INFORMATION
  Report Type: 
  Country: None (occurrence: None)
  Receive Date: 20071026
  Receipt Date: 20070910
  Transmission Date: 20080405
  Serious: Yes (Hospitalization)
  Sender: FDA-Public Use
  Company Number: JP-PURDUE-USA_2007_0028010

PATIENT
  Age: 51 Year
  Sex: Female
  Weight: 22 kg

DRUGS (4)
  1. THEOPHYLLINE (SIMILAR TO 40-086) [Suspect]
     Indication: ASTHMA
     Dosage: 200 MG, DAILY
     Dates: start: 19980101, end: 20030804
  2. PREDNISOLONE [Concomitant]
     Indication: ASTHMA
     Dosage: 5 MG, DAILY
     Dates: start: 19880101
  3. CALCIUM LACTATE [Concomitant]
     Indication: OSTEOPOROSIS
     Dosage: 3 GRAM, DAILY
     Dates: start: 19970101, end: 20030301
  4. ALFACALCIDOL [Concomitant]
     Indication: OSTEOPOROSIS
     Dosage: 1 MEQ, DAILY
     Dates: start: 19970101, end: 20030301

REACTIONS (1)
  - HYPERCALCAEMIA [None]
